FAERS Safety Report 5895070-8 (Version None)
Quarter: 2008Q3

REPORT INFORMATION
  Report Type: 
  Country: None (occurrence: None)
  Receive Date: 20080922
  Receipt Date: 20080804
  Transmission Date: 20090109
  Serious: Yes (Life-Threatening, Hospitalization)
  Sender: FDA-Public Use
  Company Number: WAES 0808FRA00006

PATIENT
  Age: 36 Year
  Sex: Female

DRUGS (8)
  1. ALDOMET [Suspect]
     Indication: HYPERTENSION
     Dosage: 250 MG, TID, PO
     Route: 048
     Dates: start: 20070220
  2. ACEPROMETAZINE MALEATE (+) MEPROBAMATE [Concomitant]
  3. INSULIN [Concomitant]
  4. LABETALOL HCL [Concomitant]
  5. LERCANIDIPINE [Concomitant]
  6. NICARDIPINE HCL [Concomitant]
  7. ROSIGLITAZONE MALEATE [Concomitant]
  8. VENLAFAXINE HCL [Concomitant]

REACTIONS (6)
  - CAESAREAN SECTION [None]
  - DRUG EXPOSURE DURING PREGNANCY [None]
  - FOETAL ARRHYTHMIA [None]
  - FOETAL GROWTH RETARDATION [None]
  - OLIGOHYDRAMNIOS [None]
  - PREMATURE BABY [None]
